FAERS Safety Report 11792424 (Version 2)
Quarter: 2016Q1

REPORT INFORMATION
  Report Type: Report from Study
  Country: US (occurrence: US)
  Receive Date: 20151202
  Receipt Date: 20160303
  Transmission Date: 20160525
  Serious: Yes (Other)
  Sender: FDA-Public Use
  Company Number: US-AMGEN-USASL2015126219

PATIENT
  Age: 62 Year
  Sex: Female

DRUGS (2)
  1. NPLATE [Suspect]
     Active Substance: ROMIPLOSTIM
     Indication: PRODUCT USED FOR UNKNOWN INDICATION
     Dosage: UNK
     Route: 065
     Dates: start: 20141231
  2. PREDNISONE. [Suspect]
     Active Substance: PREDNISONE
     Indication: EAR PAIN
     Dosage: 20 MG, UNK
     Route: 065

REACTIONS (5)
  - Deafness unilateral [Not Recovered/Not Resolved]
  - Ear pain [Not Recovered/Not Resolved]
  - Meniere^s disease [Recovering/Resolving]
  - Mastoidectomy [Recovering/Resolving]
  - Weight increased [Unknown]

NARRATIVE: CASE EVENT DATE: 201510
